FAERS Safety Report 16376864 (Version 2)
Quarter: 2019Q3

REPORT INFORMATION
  Report Type: Spontaneous
  Country: DE (occurrence: DE)
  Receive Date: 20190531
  Receipt Date: 20190704
  Transmission Date: 20191004
  Serious: Yes (Death)
  Sender: FDA-Public Use
  Company Number: DE-ASTRAZENECA-2019SE78219

PATIENT
  Sex: Male
  Weight: 85 kg

DRUGS (1)
  1. IMFINZI [Suspect]
     Active Substance: DURVALUMAB
     Indication: NON-SMALL CELL LUNG CANCER
     Dosage: 50.0MG UNKNOWN
     Route: 042
     Dates: start: 201904

REACTIONS (3)
  - Granulomatosis with polyangiitis [Fatal]
  - C-reactive protein increased [Fatal]
  - Pulmonary haemorrhage [Fatal]
